FAERS Safety Report 5477705-7 (Version None)
Quarter: 2007Q4

REPORT INFORMATION
  Report Type: 
  Country: None (occurrence: None)
  Receive Date: 20071003
  Receipt Date: 20071003
  Transmission Date: 20080405
  Serious: Yes (Hospitalization)
  Sender: FDA-Public Use
  Company Number: None

PATIENT
  Sex: Male
  Weight: 83 kg

DRUGS (11)
  1. VINORELBINE [Suspect]
     Indication: ADENOID CYSTIC CARCINOMA
     Dosage: 31 MG D1,D8,D15/CYCLE 042
     Dates: start: 20070314, end: 20070907
  2. LAPATINIB [Suspect]
     Indication: ADENOID CYSTIC CARCINOMA
     Dosage: 750 MG QD 047
     Dates: start: 20070314, end: 20070907
  3. OXYCODONE HCL [Concomitant]
  4. ZOLPIDEM TARTRATE [Concomitant]
  5. NASONEX SPRAY [Concomitant]
  6. BENADRYL [Concomitant]
  7. ZOFRAN [Concomitant]
  8. ELAVIL [Concomitant]
  9. REGLAN [Concomitant]
  10. ZYRTEC [Concomitant]
  11. PREVACID [Concomitant]

REACTIONS (2)
  - PAIN [None]
  - WOUND DEHISCENCE [None]
